FAERS Safety Report 17604103 (Version 1)
Quarter: 2020Q1

REPORT INFORMATION
  Report Type: Spontaneous
  Country: US (occurrence: US)
  Receive Date: 20200331
  Receipt Date: 20200331
  Transmission Date: 20200409
  Serious: No
  Sender: FDA-Public Use
  Company Number: US-JNJFOC-20200325691

PATIENT
  Age: 2 Year
  Sex: Female

DRUGS (4)
  1. CROMOLYN                           /00082101/ [Concomitant]
     Active Substance: CROMOLYN
     Indication: MAST CELL ACTIVATION SYNDROME
     Route: 065
  2. CHILDRENS ZYRTEC [Suspect]
     Active Substance: CETIRIZINE HYDROCHLORIDE
     Indication: MAST CELL ACTIVATION SYNDROME
     Dosage: 7.5 ML
     Route: 065
  3. CHILDRENS ZYRTEC [Suspect]
     Active Substance: CETIRIZINE HYDROCHLORIDE
     Indication: MASTOCYTOSIS
  4. CROMOLYN                           /00082101/ [Concomitant]
     Active Substance: CROMOLYN
     Indication: MASTOCYTOSIS

REACTIONS (2)
  - Overdose [Unknown]
  - Product use in unapproved indication [Unknown]
